FAERS Safety Report 17900086 (Version 1)
Quarter: 2020Q2

REPORT INFORMATION
  Report Type: Spontaneous
  Country: ES (occurrence: ES)
  Receive Date: 20200616
  Receipt Date: 20200616
  Transmission Date: 20200714
  Serious: Yes (Other)
  Sender: FDA-Public Use
  Company Number: ES-TEVA-2020-ES-1247758

PATIENT
  Age: 60 Year
  Sex: Female

DRUGS (10)
  1. HIDROXICLOROQUINA 200 MG COMPRIMIDO [Interacting]
     Active Substance: HYDROXYCHLOROQUINE
     Dosage: 200 MG
     Route: 048
     Dates: start: 20200404, end: 20200407
  2. AZITROMICINA (7019A) [Interacting]
     Active Substance: AZITHROMYCIN
     Indication: COVID-19 PNEUMONIA
     Dosage: 500 MG
     Dates: start: 20200401, end: 20200403
  3. LOPINAVIR/RITONAVIR 200 MG/50 MG COMPRIMIDO [Interacting]
     Active Substance: LOPINAVIR\RITONAVIR
     Dosage: 1 DOSAGE FORM
     Route: 048
     Dates: start: 20200401, end: 20200402
  4. ATORVASTATINA [ATORVASTATIN] [Concomitant]
     Active Substance: ATORVASTATIN
     Indication: HYPERLIPIDAEMIA
     Dosage: 20 MG
     Route: 048
     Dates: start: 20130628
  5. TELMISARTAN AND HYDROCHLOROTHIAZIDE TABLETS (80 MG/25 MG), USP [Concomitant]
     Active Substance: HYDROCHLOROTHIAZIDE\TELMISARTAN
     Indication: ESSENTIAL HYPERTENSION
     Dosage: 80 MG
     Route: 048
     Dates: start: 20170624
  6. LOPINAVIR/RITONAVIR 200 MG/50 MG COMPRIMIDO [Interacting]
     Active Substance: LOPINAVIR\RITONAVIR
     Indication: COVID-19 PNEUMONIA
     Dosage: 1 DOSAGE FORM
     Route: 048
     Dates: start: 20200404, end: 20200410
  7. METFORMINA 850 MG 50 COMPRIMIDOS [Concomitant]
     Active Substance: METFORMIN HYDROCHLORIDE
     Indication: TYPE 2 DIABETES MELLITUS
     Dosage: 850 MG
     Route: 048
     Dates: start: 20100812
  8. HIDROXICLOROQUINA 200 MG COMPRIMIDO [Interacting]
     Active Substance: HYDROXYCHLOROQUINE
     Dosage: 200 MG
     Route: 048
     Dates: start: 20200402, end: 20200402
  9. HIDROXICLOROQUINA 200 MG COMPRIMIDO [Suspect]
     Active Substance: HYDROXYCHLOROQUINE
     Indication: COVID-19 PNEUMONIA
     Dosage: 200 MG
     Route: 048
     Dates: start: 20200401, end: 20200401
  10. TOCILIZUMAB. [Concomitant]
     Active Substance: TOCILIZUMAB
     Indication: COVID-19 PNEUMONIA
     Dosage: 600 MG
     Dates: start: 20200402

REACTIONS (3)
  - Hyperbilirubinaemia [Recovering/Resolving]
  - Long QT syndrome [Recovering/Resolving]
  - Drug interaction [Unknown]

NARRATIVE: CASE EVENT DATE: 20200403
